FAERS Safety Report 10191907 (Version 1)
Quarter: 2014Q2

REPORT INFORMATION
  Report Type: Spontaneous
  Country: BR (occurrence: None)
  Receive Date: 20140521
  Receipt Date: 20140521
  Transmission Date: 20141212
  Serious: Yes (Other)
  Sender: FDA-Public Use
  Company Number: SYM-2014-21159

PATIENT
  Age: 33 Month
  Sex: Male

DRUGS (1)
  1. ZOVIRAX OINTMENT [Suspect]
     Indication: HERPES OPHTHALMIC
     Dosage: 5 APPLICATIONS YO EACH EYE/BOTH
     Route: 047
     Dates: start: 20140428

REACTIONS (2)
  - Herpes ophthalmic [None]
  - Condition aggravated [None]
